FAERS Safety Report 8962344 (Version 1)
Quarter: 2012Q4

REPORT INFORMATION
  Report Type: Spontaneous
  Country: US (occurrence: None)
  Receive Date: 20121211
  Receipt Date: 20121211
  Transmission Date: 20130627
  Serious: Yes (Other)
  Sender: FDA-Public Use
  Company Number: None

PATIENT
  Sex: Female
  Weight: 63.05 kg

DRUGS (2)
  1. ACTONEL [Suspect]
     Indication: OSTEOPOROSIS
     Dosage: once a day mouth
     Route: 048
     Dates: start: 1989, end: 1998
  2. BONIVA [Suspect]
     Dosage: once a day mouth
     Route: 048
     Dates: start: 1998, end: 2000

REACTIONS (2)
  - Bone disorder [None]
  - Tooth loss [None]
